FAERS Safety Report 22229362 (Version 1)
Quarter: 2023Q2

REPORT INFORMATION
  Report Type: Spontaneous
  Country: US (occurrence: None)
  Receive Date: 20230418
  Receipt Date: 20230418
  Transmission Date: 20230722
  Serious: Yes (Other)
  Sender: FDA-Public Use
  Company Number: None

PATIENT
  Age: 72 Year
  Sex: Male

DRUGS (1)
  1. KEYTRUDA [Suspect]
     Active Substance: PEMBROLIZUMAB

REACTIONS (8)
  - Mental status changes [None]
  - Dizziness [None]
  - Asthenia [None]
  - Myalgia [None]
  - Arthralgia [None]
  - Hypophysitis [None]
  - Tinea infection [None]
  - Therapy cessation [None]

NARRATIVE: CASE EVENT DATE: 20230222
